FAERS Safety Report 5568235-2 (Version None)
Quarter: 2007Q4

REPORT INFORMATION
  Report Type: 
  Country: None (occurrence: None)
  Receive Date: 20071218
  Receipt Date: 20071204
  Transmission Date: 20080405
  Serious: Yes (Death)
  Sender: FDA-Public Use
  Company Number: US021893

PATIENT
  Sex: Female

DRUGS (1)
  1. ACTIQ [Suspect]
     Indication: CANCER PAIN
     Dosage: 600 UG BUCCAL
     Route: 002

REACTIONS (2)
  - LUNG NEOPLASM MALIGNANT [None]
  - MALIGNANT NEOPLASM PROGRESSION [None]
